FAERS Safety Report 6583850-5 (Version None)
Quarter: 2010Q1

REPORT INFORMATION
  Report Type: 
  Country: None (occurrence: None)
  Receive Date: 20100213
  Receipt Date: 20100213
  Transmission Date: 20100710
  Serious: Yes (Hospitalization)
  Sender: FDA-Public Use
  Company Number: None

PATIENT
  Age: 64 Year
  Sex: Female

DRUGS (1)
  1. CEFTRIAXONE (ROCEPHIN) [Suspect]
     Indication: RESPIRATORY DISTRESS
     Dosage: 1 GRAM EVERY 24 HOURS IV, 1 DOSE
     Route: 042
     Dates: start: 20091027, end: 20091027

REACTIONS (2)
  - INFUSION RELATED REACTION [None]
  - RESPIRATORY ARREST [None]
